FAERS Safety Report 9981367 (Version 1)
Quarter: 2014Q1

REPORT INFORMATION
  Report Type: Spontaneous
  Country: FR (occurrence: FR)
  Receive Date: 20140307
  Receipt Date: 20140307
  Transmission Date: 20141002
  Serious: Yes (Other)
  Sender: FDA-Public Use
  Company Number: FR-JNJFOC-20140300456

PATIENT
  Age: 73 Year
  Sex: Female

DRUGS (7)
  1. XARELTO [Suspect]
     Indication: THROMBOSIS PROPHYLAXIS
     Route: 048
     Dates: start: 20140114, end: 20140115
  2. LOVENOX [Suspect]
     Indication: THROMBOSIS PROPHYLAXIS
     Route: 058
     Dates: start: 20140116
  3. LOVENOX [Suspect]
     Indication: THROMBOSIS PROPHYLAXIS
     Route: 058
     Dates: start: 20140113, end: 20140113
  4. LEVOTHYROX [Concomitant]
     Route: 065
  5. EUPANTOL [Concomitant]
     Route: 065
     Dates: start: 20140113
  6. PROFENID [Concomitant]
     Route: 065
     Dates: start: 20140113, end: 20140115
  7. CEFAZOLINE [Concomitant]
     Route: 042
     Dates: start: 20140113, end: 20140113

REACTIONS (1)
  - Deep vein thrombosis [Recovered/Resolved]
